FAERS Safety Report 24678864 (Version 2)
Quarter: 2024Q4

REPORT INFORMATION
  Report Type: Spontaneous
  Country: FR (occurrence: FR)
  Receive Date: 20241129
  Receipt Date: 20241216
  Transmission Date: 20250115
  Serious: Yes (Hospitalization, Other)
  Sender: AUROBINDO
  Company Number: FR-AFSSAPS-NT2024001371

PATIENT
  Age: 13 Year
  Sex: Female

DRUGS (1)
  1. ACETAMINOPHEN [Suspect]
     Active Substance: ACETAMINOPHEN
     Indication: Product used for unknown indication
     Dosage: 30 GRAM
     Route: 048
     Dates: start: 20240812, end: 20240812

REACTIONS (3)
  - Hepatocellular injury [Recovering/Resolving]
  - Toxicity to various agents [Recovering/Resolving]
  - Prothrombin time ratio decreased [Recovering/Resolving]

NARRATIVE: CASE EVENT DATE: 20240812
